FAERS Safety Report 11666697 (Version 3)
Quarter: 2015Q4

REPORT INFORMATION
  Report Type: Spontaneous
  Country: CL (occurrence: CH)
  Receive Date: 20151027
  Receipt Date: 20151028
  Transmission Date: 20160304
  Serious: Yes (Death)
  Sender: FDA-Public Use
  Company Number: PHHY2015CH138975

PATIENT
  Sex: Male

DRUGS (1)
  1. GLIVEC [Suspect]
     Active Substance: IMATINIB MESYLATE
     Indication: LEUKAEMIA
     Dosage: UNK UNK, FOUR TIMES A DAY (QID)
     Route: 065

REACTIONS (2)
  - Off label use [Unknown]
  - Death [Fatal]
